FAERS Safety Report 13908999 (Version 1)
Quarter: 2017Q3

REPORT INFORMATION
  Report Type: Spontaneous
  Country: US (occurrence: US)
  Receive Date: 20170828
  Receipt Date: 20170828
  Transmission Date: 20171127
  Serious: No
  Sender: FDA-Public Use
  Company Number: US-ASTRAZENECA-2017SE87001

PATIENT
  Age: 835 Month
  Sex: Female

DRUGS (5)
  1. BABY ASPRIN [Concomitant]
     Active Substance: ASPIRIN
     Route: 048
  2. OMEPRAZOLE. [Suspect]
     Active Substance: OMEPRAZOLE
     Indication: GASTROOESOPHAGEAL REFLUX DISEASE
     Route: 048
  3. CRESTOR [Suspect]
     Active Substance: ROSUVASTATIN CALCIUM
     Indication: BLOOD CHOLESTEROL ABNORMAL
     Route: 048
     Dates: start: 1985, end: 20170721
  4. SYMBICORT [Suspect]
     Active Substance: BUDESONIDE\FORMOTEROL FUMARATE DIHYDRATE
     Indication: ASTHMA
     Dosage: 160/4.5MCG TWO TIMES A DAY
     Route: 055
  5. COZAAR/LOSARTAN [Concomitant]
     Indication: BLOOD PRESSURE ABNORMAL
     Route: 048

REACTIONS (14)
  - Lung disorder [Unknown]
  - Amnesia [Unknown]
  - Thyroid mass [Unknown]
  - Product storage error [Recovered/Resolved]
  - Dyspnoea [Unknown]
  - Body height decreased [Unknown]
  - Lower respiratory tract infection [Recovered/Resolved]
  - Hepatic enzyme increased [Unknown]
  - Gastrooesophageal reflux disease [Unknown]
  - Musculoskeletal discomfort [Unknown]
  - Muscle enzyme increased [Unknown]
  - Off label use [Recovered/Resolved]
  - Limb discomfort [Unknown]
  - Muscle spasms [Recovered/Resolved]

NARRATIVE: CASE EVENT DATE: 201702
